FAERS Safety Report 19024091 (Version 1)
Quarter: 2021Q1

REPORT INFORMATION
  Report Type: Spontaneous
  Country: AU (occurrence: AU)
  Receive Date: 20210317
  Receipt Date: 20210317
  Transmission Date: 20210420
  Serious: Yes (Other)
  Sender: FDA-Public Use
  Company Number: AU-ANIPHARMA-2021-AU-000068

PATIENT
  Age: 65 Year
  Sex: Female

DRUGS (4)
  1. BUPRENORPHINE. [Suspect]
     Active Substance: BUPRENORPHINE
     Indication: DRUG USE DISORDER
     Route: 061
  2. KETAMINE [Concomitant]
     Active Substance: KETAMINE
  3. OXYCODONE (NON?SPECIFIC) [Suspect]
     Active Substance: OXYCODONE
     Indication: PRODUCT USED FOR UNKNOWN INDICATION
  4. CLONIDINE. [Concomitant]
     Active Substance: CLONIDINE

REACTIONS (2)
  - Stress cardiomyopathy [Unknown]
  - Drug withdrawal syndrome [Unknown]
